FAERS Safety Report 10437924 (Version 1)
Quarter: 2014Q3

REPORT INFORMATION
  Report Type: Spontaneous
  Country: US (occurrence: US)
  Receive Date: 20140908
  Receipt Date: 20140908
  Transmission Date: 20150326
  Serious: No
  Sender: FDA-Public Use
  Company Number: US-BAXTER-2014BAX050993

PATIENT
  Age: 52 Year
  Sex: Female

DRUGS (2)
  1. TISSEEL VH [Suspect]
     Active Substance: FIBRINOGEN HUMAN\THROMBIN HUMAN
     Indication: OFF LABEL USE
  2. TISSEEL VH [Suspect]
     Active Substance: FIBRINOGEN HUMAN\THROMBIN HUMAN
     Indication: FACE LIFT
     Dosage: EASY SPRAY APPLICATOR WITH NITROGEN
     Route: 050
     Dates: start: 20140501

REACTIONS (3)
  - Erythema [Unknown]
  - Dermatitis [Unknown]
  - Skin irritation [Unknown]

NARRATIVE: CASE EVENT DATE: 20140514
